FAERS Safety Report 12913070 (Version 1)
Quarter: 2016Q4

REPORT INFORMATION
  Report Type: Spontaneous
  Country: CA (occurrence: CA)
  Receive Date: 20161104
  Receipt Date: 20161104
  Transmission Date: 20170207
  Serious: Yes (Hospitalization)
  Sender: FDA-Public Use
  Company Number: CA-ABBVIE-16K-028-1772051-00

PATIENT
  Age: 70 Year
  Sex: Female

DRUGS (4)
  1. NEORAL [Concomitant]
     Active Substance: CYCLOSPORINE
     Indication: PSORIASIS
  2. ENBREL [Concomitant]
     Active Substance: ETANERCEPT
     Indication: PRODUCT USED FOR UNKNOWN INDICATION
  3. HUMIRA [Suspect]
     Active Substance: ADALIMUMAB
     Indication: PRODUCT USED FOR UNKNOWN INDICATION
     Route: 058
  4. STELARA [Concomitant]
     Active Substance: USTEKINUMAB
     Indication: PRODUCT USED FOR UNKNOWN INDICATION
     Route: 058

REACTIONS (19)
  - Lung disorder [Recovering/Resolving]
  - Cough [Recovering/Resolving]
  - Blood creatinine increased [Recovering/Resolving]
  - Swelling face [Recovering/Resolving]
  - Psoriasis [Recovering/Resolving]
  - Nasal septum deviation [Recovering/Resolving]
  - Skin exfoliation [Recovering/Resolving]
  - Pharyngeal oedema [Recovering/Resolving]
  - Dyspnoea [Recovering/Resolving]
  - Depression [Recovering/Resolving]
  - Crying [Recovering/Resolving]
  - Secretion discharge [Recovering/Resolving]
  - Paraesthesia [Recovering/Resolving]
  - Hypersensitivity [Recovering/Resolving]
  - Fatigue [Recovering/Resolving]
  - Asthma [Recovering/Resolving]
  - Dry skin [Recovering/Resolving]
  - Sleep apnoea syndrome [Recovering/Resolving]
  - Weight increased [Recovering/Resolving]
